FAERS Safety Report 5446218-0 (Version None)
Quarter: 2007Q3

REPORT INFORMATION
  Report Type: 
  Country: None (occurrence: None)
  Receive Date: 20070731
  Receipt Date: 20070126
  Transmission Date: 20080115
  Serious: Yes (Other)
  Sender: FDA-Public Use
  Company Number: US-2007-002999

PATIENT
  Age: 24 Year
  Sex: Female
  Weight: 67 kg

DRUGS (1)
  1. MAGNEVIST INJECTION(GADOPENTETATE DIMEGLUMINE) INJECTION [Suspect]
     Indication: NUCLEAR MAGNETIC RESONANCE IMAGING
     Dosage: 20 ML, 1 DOSE, INTRAVENOUS
     Route: 042
     Dates: start: 20070125, end: 20070125

REACTIONS (5)
  - CHILLS [None]
  - DYSPNOEA [None]
  - HYPOAESTHESIA FACIAL [None]
  - SWELLING FACE [None]
  - THROAT TIGHTNESS [None]
